FAERS Safety Report 4497456-5 (Version None)
Quarter: 2004Q4

REPORT INFORMATION
  Report Type: 
  Country: None (occurrence: None)
  Receive Date: 20041110
  Receipt Date: 20041025
  Transmission Date: 20050328
  Serious: Yes (Hospitalization)
  Sender: FDA-Public Use
  Company Number: US-MERCK-0410USA03676

PATIENT
  Age: 58 Year
  Sex: Female

DRUGS (5)
  1. VIOXX [Suspect]
     Indication: ARTHRITIS
     Route: 048
     Dates: start: 20010301, end: 20040930
  2. NEURONTIN [Concomitant]
     Route: 065
  3. MAVIK [Concomitant]
     Route: 065
  4. CELEXA [Concomitant]
     Route: 065
  5. ATENOLOL AND CHLORTHALIDONE [Concomitant]
     Route: 065

REACTIONS (2)
  - CEREBROVASCULAR ACCIDENT [None]
  - SLEEP DISORDER [None]
